FAERS Safety Report 4579979-3 (Version None)
Quarter: 2005Q1

REPORT INFORMATION
  Report Type: 
  Country: None (occurrence: None)
  Receive Date: 20050214
  Receipt Date: 20040616
  Transmission Date: 20050727
  Serious: Yes (Hospitalization)
  Sender: FDA-Public Use
  Company Number: FR-ROCHE-371257

PATIENT
  Age: 74 Year
  Sex: Female

DRUGS (11)
  1. RIVOTRIL [Suspect]
     Indication: DRUG USE FOR UNKNOWN INDICATION
     Route: 048
     Dates: start: 20040226, end: 20040302
  2. ATARAX [Interacting]
     Indication: DRUG USE FOR UNKNOWN INDICATION
     Route: 048
  3. MIZOLLEN [Interacting]
     Indication: DRUG USE FOR UNKNOWN INDICATION
     Route: 048
     Dates: end: 20040303
  4. ZYRTEC [Interacting]
     Indication: DRUG USE FOR UNKNOWN INDICATION
     Route: 048
     Dates: end: 20040304
  5. TRAMADOL HCL [Interacting]
     Indication: DRUG USE FOR UNKNOWN INDICATION
     Route: 048
     Dates: end: 20040303
  6. PRAXILENE [Suspect]
     Indication: ARTERITIS
     Route: 048
     Dates: end: 20040303
  7. UMULINE NPH [Concomitant]
     Dosage: 24 IU IN THE MORNING, 8 IU IN THE EVENING.
     Route: 058
  8. AMLODIPINE BESYLATE [Concomitant]
     Route: 048
     Dates: end: 20040305
  9. COZAAR [Concomitant]
     Route: 048
  10. PLAVIX [Concomitant]
     Route: 048
  11. NEURONTIN [Concomitant]

REACTIONS (8)
  - CONFUSIONAL STATE [None]
  - CREATININE RENAL CLEARANCE DECREASED [None]
  - DISORIENTATION [None]
  - DRUG INTERACTION [None]
  - ELECTROENCEPHALOGRAM ABNORMAL [None]
  - MEDICATION ERROR [None]
  - SELF-MEDICATION [None]
  - SOMNOLENCE [None]
